FAERS Safety Report 20240146 (Version 2)
Quarter: 2022Q1

REPORT INFORMATION
  Report Type: Spontaneous
  Country: JP (occurrence: JP)
  Receive Date: 20211228
  Receipt Date: 20220106
  Transmission Date: 20220423
  Serious: Yes (Death)
  Sender: FDA-Public Use
  Company Number: JP-002147023-NVSJ2021JP020664

PATIENT

DRUGS (1)
  1. RUXOLITINIB [Suspect]
     Active Substance: RUXOLITINIB
     Indication: Polycythaemia vera
     Dosage: UNK
     Route: 048

REACTIONS (4)
  - Death [Fatal]
  - Therapeutic product effect incomplete [Unknown]
  - Malignant neoplasm progression [Fatal]
  - Myelofibrosis [Fatal]

NARRATIVE: CASE EVENT DATE: 20210101
